FAERS Safety Report 9330106 (Version 2)
Quarter: 2013Q3

REPORT INFORMATION
  Report Type: Spontaneous
  Country: US (occurrence: US)
  Receive Date: 20130604
  Receipt Date: 20130927
  Transmission Date: 20140515
  Serious: Yes (Death)
  Sender: FDA-Public Use
  Company Number: US-B.I. PHARMACEUTICALS,INC./RIDGEFIELD-2013-BI-15375BP

PATIENT
  Age: 64 Year
  Sex: Female

DRUGS (5)
  1. SPIRIVA [Suspect]
     Indication: CHRONIC OBSTRUCTIVE PULMONARY DISEASE
     Route: 055
     Dates: start: 2004
  2. OXYCODON [Concomitant]
     Dosage: 80 MG
  3. LASIX [Concomitant]
  4. ADVAIR [Concomitant]
  5. PRILOSEC [Concomitant]

REACTIONS (1)
  - Chronic obstructive pulmonary disease [Fatal]
